FAERS Safety Report 7277139-9 (Version None)
Quarter: 2011Q1

REPORT INFORMATION
  Report Type: 
  Country: None (occurrence: None)
  Receive Date: 20110207
  Receipt Date: 20110131
  Transmission Date: 20110831
  Serious: Yes (Other)
  Sender: FDA-Public Use
  Company Number: DE-PFIZER INC-2011021673

PATIENT
  Age: 45 Year
  Sex: Female

DRUGS (3)
  1. MARCUMAR [Concomitant]
  2. AROMASIN [Suspect]
     Dosage: UNK
     Dates: start: 20100101
  3. TAMOXIFEN CITRATE [Concomitant]

REACTIONS (2)
  - NERVOUS SYSTEM DISORDER [None]
  - MENINGEAL DISORDER [None]
